FAERS Safety Report 7587749-7 (Version None)
Quarter: 2011Q3

REPORT INFORMATION
  Report Type: 
  Country: None (occurrence: None)
  Receive Date: 20110705
  Receipt Date: 20110630
  Transmission Date: 20111222
  Serious: Yes (Hospitalization)
  Sender: FDA-Public Use
  Company Number: IT-BRISTOL-MYERS SQUIBB COMPANY-15871338

PATIENT
  Age: 72 Year
  Sex: Male

DRUGS (5)
  1. IRINOTECAN HCL [Concomitant]
     Indication: COLON CANCER
  2. ACETAMINOPHEN [Concomitant]
  3. TARGIN [Concomitant]
  4. FLUOROURACIL [Concomitant]
     Indication: COLON CANCER
  5. ERBITUX [Suspect]
     Indication: COLON CANCER
     Dosage: LAST INFUSION ON 15JUN2011.
     Route: 042
     Dates: start: 20100427, end: 20110615

REACTIONS (3)
  - SUBILEUS [None]
  - VOMITING [None]
  - DIARRHOEA [None]
